FAERS Safety Report 16736731 (Version 1)
Quarter: 2019Q3

REPORT INFORMATION
  Report Type: Spontaneous
  Country: CN (occurrence: CN)
  Receive Date: 20190823
  Receipt Date: 20190823
  Transmission Date: 20191005
  Serious: Yes (Hospitalization, Disabling)
  Sender: FDA-Public Use
  Company Number: CN-009507513-1908CHN007940

PATIENT
  Age: 61 Year
  Sex: Male
  Weight: 60 kg

DRUGS (13)
  1. SINGULAIR [Suspect]
     Active Substance: MONTELUKAST SODIUM
     Indication: ASTHMA
  2. DOXOFYLLINE [Suspect]
     Active Substance: DOXOFYLLINE
     Indication: ANTI-INFECTIVE THERAPY
  3. ASMETON [Suspect]
     Active Substance: AMINOPHYLLINE\CHLORPHENIRAMINE MALEATE\METHOXYPHENAMINE HYDROCHLORIDE\NOSCAPINE
     Indication: SARCOIDOSIS
     Dosage: 1 TABLET, TID
     Route: 048
     Dates: start: 20190722, end: 20190813
  4. DOXOFYLLINE [Suspect]
     Active Substance: DOXOFYLLINE
     Indication: SARCOIDOSIS
     Dosage: 0.3 GRAM, QD
     Route: 041
     Dates: start: 20190722, end: 20190813
  5. METHYLPREDNISOLONE. [Suspect]
     Active Substance: METHYLPREDNISOLONE
     Indication: ASTHMA
  6. CODEINE PHOSPHATE [Suspect]
     Active Substance: CODEINE PHOSPHATE
     Indication: SARCOIDOSIS
     Dosage: 30 MILLIGRAM, BID
     Route: 048
     Dates: start: 20190731, end: 20190813
  7. SINGULAIR [Suspect]
     Active Substance: MONTELUKAST SODIUM
     Indication: SARCOIDOSIS
  8. METHYLPREDNISOLONE. [Suspect]
     Active Substance: METHYLPREDNISOLONE
     Indication: SARCOIDOSIS
     Dosage: 40 MILLIGRAM, QD
     Route: 042
     Dates: start: 20190731, end: 20190813
  9. ADALAT [Suspect]
     Active Substance: NIFEDIPINE
     Indication: HYPERTENSION
     Dosage: 30 MILLIGRAM, QM
     Dates: start: 20190801, end: 20190813
  10. METHYLPREDNISOLONE. [Suspect]
     Active Substance: METHYLPREDNISOLONE
     Indication: INFLAMMATION
  11. SINGULAIR [Suspect]
     Active Substance: MONTELUKAST SODIUM
     Indication: BRONCHIAL DISORDER
     Dosage: 10 MILLIGRAM, QD
     Route: 048
     Dates: start: 20190722, end: 20190813
  12. CODEINE PHOSPHATE [Suspect]
     Active Substance: CODEINE PHOSPHATE
     Indication: ANTITUSSIVE THERAPY
  13. DIOVAN [Suspect]
     Active Substance: VALSARTAN
     Indication: HYPERTENSION
     Dosage: 80 MILLIGRAM, QM
     Route: 048
     Dates: start: 20190809, end: 20190813

REACTIONS (3)
  - Acute myocardial infarction [Unknown]
  - Hepatic function abnormal [Unknown]
  - Peripheral swelling [Unknown]

NARRATIVE: CASE EVENT DATE: 20190812
